FAERS Safety Report 14830031 (Version 1)
Quarter: 2018Q2

REPORT INFORMATION
  Report Type: Spontaneous
  Country: CA (occurrence: CA)
  Receive Date: 20180430
  Receipt Date: 20180430
  Transmission Date: 20180711
  Serious: Yes (Hospitalization, Other)
  Sender: FDA-Public Use
  Company Number: CA-PFIZER INC-2018158828

PATIENT
  Age: 49 Year
  Sex: Male

DRUGS (1)
  1. SUTENT [Suspect]
     Active Substance: SUNITINIB MALATE
     Dosage: 50 MG, CYCLIC (4 WEEKS ON, 2 WEEKS OFF)
     Dates: start: 20171215

REACTIONS (6)
  - Peritoneal haemorrhage [Unknown]
  - Pancytopenia [Unknown]
  - Haemoglobin decreased [Unknown]
  - Dizziness [Unknown]
  - Rash [Unknown]
  - Neoplasm progression [Unknown]
